FAERS Safety Report 18394400 (Version 3)
Quarter: 2020Q4

REPORT INFORMATION
  Report Type: Spontaneous
  Country: US (occurrence: US)
  Receive Date: 20201016
  Receipt Date: 20201102
  Transmission Date: 20210114
  Serious: No
  Sender: FDA-Public Use
  Company Number: US-009507513-2010USA002089

PATIENT
  Sex: Male

DRUGS (3)
  1. ASMANEX [Suspect]
     Active Substance: MOMETASONE FUROATE
     Dosage: 2 PUFFS DAILY
     Dates: start: 20200926, end: 2020
  2. ASMANEX [Suspect]
     Active Substance: MOMETASONE FUROATE
     Dosage: UNK
  3. ASMANEX [Suspect]
     Active Substance: MOMETASONE FUROATE
     Dosage: 2 PUFFS DAILY (30 DOSE)
     Dates: start: 20201003, end: 202010

REACTIONS (7)
  - Poor quality device used [Unknown]
  - Product dose omission issue [Unknown]
  - Circumstance or information capable of leading to medication error [Unknown]
  - Poor quality device used [Unknown]
  - No adverse event [Unknown]
  - Device malfunction [Unknown]
  - Device malfunction [Unknown]

NARRATIVE: CASE EVENT DATE: 20200926
